FAERS Safety Report 20654457 (Version 4)
Quarter: 2024Q4

REPORT INFORMATION
  Report Type: Spontaneous
  Country: US (occurrence: US)
  Receive Date: 20220330
  Receipt Date: 20241017
  Transmission Date: 20250114
  Serious: No
  Sender: PFIZER
  Company Number: US-PFIZER INC-2021492804

PATIENT
  Age: 56 Year
  Sex: Female
  Weight: 107.5 kg

DRUGS (2)
  1. IBRANCE [Suspect]
     Active Substance: PALBOCICLIB
     Indication: Breast cancer metastatic
     Dosage: 125 MG, CYCLIC, 4 WEEKS ON AND 7 DAYS OFF
     Route: 048
  2. IBRANCE [Suspect]
     Active Substance: PALBOCICLIB
     Dosage: 125 MG, CYCLIC, 21 DAYS THEN 7 DAYS OFF
     Route: 048
     Dates: start: 20240206

REACTIONS (2)
  - Off label use [Unknown]
  - Product use issue [Unknown]
